FAERS Safety Report 4392821-9 (Version None)
Quarter: 2004Q3

REPORT INFORMATION
  Report Type: 
  Country: None (occurrence: None)
  Receive Date: 20040702
  Receipt Date: 20040317
  Transmission Date: 20050211
  Serious: Yes (Other)
  Sender: FDA-Public Use
  Company Number: 2004UW05229

PATIENT
  Sex: Female

DRUGS (6)
  1. RHINOCORT [Suspect]
  2. CRESTOR [Suspect]
     Dosage: 10 MG DAILY PO
     Route: 048
  3. PAXIL [Suspect]
  4. GLUCOPHAGE [Suspect]
  5. DIOVAN [Suspect]
  6. ZYRTEC [Suspect]

REACTIONS (1)
  - PARALYSIS [None]
